FAERS Safety Report 6038105-4 (Version None)
Quarter: 2009Q1

REPORT INFORMATION
  Report Type: 
  Country: None (occurrence: None)
  Receive Date: 20090113
  Receipt Date: 20090113
  Transmission Date: 20090719
  Serious: Yes (Life-Threatening)
  Sender: FDA-Public Use
  Company Number: None

PATIENT
  Age: 42 Year
  Sex: Male
  Weight: 78 kg

DRUGS (1)
  1. IBUPROFEN TABLETS [Suspect]
     Indication: HEADACHE
     Dosage: 400 MG A PO
     Route: 048
     Dates: start: 20080110, end: 20080110

REACTIONS (9)
  - ASTHMA [None]
  - COUGH [None]
  - DYSPNOEA [None]
  - HYPOVENTILATION [None]
  - INCREASED UPPER AIRWAY SECRETION [None]
  - NASAL CONGESTION [None]
  - NO THERAPEUTIC RESPONSE [None]
  - PALPITATIONS [None]
  - THROAT TIGHTNESS [None]
